FAERS Safety Report 10502811 (Version 1)
Quarter: 2014Q4

REPORT INFORMATION
  Report Type: Spontaneous
  Country: JP (occurrence: None)
  Receive Date: 20141003
  Receipt Date: 20141003
  Transmission Date: 20150528
  Serious: Yes (Other)
  Sender: FDA-Public Use
  Company Number: INT_00425_2014

PATIENT
  Age: 80 Year
  Sex: Female

DRUGS (3)
  1. ETOPOSIDE (ETOPOSIDE) [Suspect]
     Active Substance: ETOPOSIDE
     Indication: SMALL CELL LUNG CANCER
     Dosage: ON DAYS 1-3 OF A 28 DAY CYCLE, ONE CYCLE
  2. CISPLATIN. [Suspect]
     Active Substance: CISPLATIN
     Indication: SMALL CELL LUNG CANCER
     Dosage: ON DAYS 1-3 OF A 28 DAY CYCLE, AT LEAST ONE CYCLE
  3. HYPERFRACTIONATED THORACIC RADIOTHERAP Y C [Suspect]
     Active Substance: RADIATION THERAPY
     Indication: SMALL CELL LUNG CANCER
     Dosage: TOTAL DOSE OF 45 GY OVER 3 WEEKS

REACTIONS (4)
  - Neutropenia [None]
  - Myocardial ischaemia [None]
  - Toxicity to various agents [None]
  - Leukopenia [None]
